FAERS Safety Report 17509778 (Version 1)
Quarter: 2020Q1

REPORT INFORMATION
  Report Type: Spontaneous
  Country: US (occurrence: US)
  Receive Date: 20200306
  Receipt Date: 20200306
  Transmission Date: 20200409
  Serious: Yes (Hospitalization, Other)
  Sender: FDA-Public Use
  Company Number: US-PFIZER INC-2020041246

PATIENT
  Age: 67 Year
  Sex: Female

DRUGS (1)
  1. XELJANZ [Suspect]
     Active Substance: TOFACITINIB CITRATE
     Indication: RHEUMATOID ARTHRITIS
     Dosage: 5 MG, 2X/DAY
     Route: 048
     Dates: start: 201911

REACTIONS (11)
  - Neck pain [Unknown]
  - Productive cough [Unknown]
  - Product dose omission [Unknown]
  - Joint swelling [Unknown]
  - Finger deformity [Unknown]
  - Nerve compression [Unknown]
  - Dyspnoea [Unknown]
  - Sputum discoloured [Unknown]
  - Arthralgia [Unknown]
  - Anaemia [Unknown]
  - Condition aggravated [Unknown]
